FAERS Safety Report 6635995-9 (Version None)
Quarter: 2010Q1

REPORT INFORMATION
  Report Type: 
  Country: None (occurrence: None)
  Receive Date: 20100225
  Receipt Date: 20090128
  Transmission Date: 20100710
  Serious: Yes (Hospitalization)
  Sender: FDA-Public Use
  Company Number: US-JNJFOC-20090200294

PATIENT
  Age: 86 Year
  Sex: Female

DRUGS (3)
  1. IBUPROFEN [Suspect]
     Indication: DRUG USE FOR UNKNOWN INDICATION
  2. PLAVIX [Suspect]
     Indication: AMNESIA
     Dosage: 75 MG, 1 IN 1 DAY, ORAL
     Route: 048
  3. COZAAR [Concomitant]

REACTIONS (1)
  - ULCER HAEMORRHAGE [None]
